FAERS Safety Report 16947717 (Version 2)
Quarter: 2019Q4

REPORT INFORMATION
  Report Type: Spontaneous
  Country: US (occurrence: US)
  Receive Date: 20191022
  Receipt Date: 20191209
  Transmission Date: 20200122
  Serious: Yes (Hospitalization)
  Sender: FDA-Public Use
  Company Number: US-PFIZER INC-2017426499

PATIENT
  Age: 75 Year
  Sex: Female

DRUGS (7)
  1. DETROL LA [Suspect]
     Active Substance: TOLTERODINE TARTRATE
     Indication: BLADDER SPASM
     Dosage: 4 MG, DAILY
     Route: 048
     Dates: start: 2009
  2. DETROL LA [Suspect]
     Active Substance: TOLTERODINE TARTRATE
     Indication: URINARY INCONTINENCE
  3. PHENOBARBITAL. [Concomitant]
     Active Substance: PHENOBARBITAL
     Dosage: UNK
  4. ATENOLOL. [Concomitant]
     Active Substance: ATENOLOL
     Dosage: 50 MG, UNK
  5. ESTRADIOL [ESTRADIOL BENZOATE] [Concomitant]
     Dosage: 1 MG, UNK
  6. ELMIRON [Concomitant]
     Active Substance: PENTOSAN POLYSULFATE SODIUM
     Dosage: 100 MG, UNK
  7. DILANTIN [Concomitant]
     Active Substance: PHENYTOIN
     Dosage: UNK

REACTIONS (2)
  - Accident at home [Recovered/Resolved]
  - Clumsiness [Recovered/Resolved]
